FAERS Safety Report 14971719 (Version 1)
Quarter: 2018Q2

REPORT INFORMATION
  Report Type: Spontaneous
  Country: DE (occurrence: DE)
  Receive Date: 20180604
  Receipt Date: 20180604
  Transmission Date: 20180711
  Serious: Yes (Other)
  Sender: FDA-Public Use
  Company Number: DE-MERCK KGAA-2048981

PATIENT
  Age: 60 Year
  Sex: Female

DRUGS (15)
  1. ATOSIL [Concomitant]
     Active Substance: PROMETHAZINE HYDROCHLORIDE
  2. PREDNISOLONE. [Concomitant]
     Active Substance: PREDNISOLONE
  3. IDEOS(LEKOVIT CA) [Concomitant]
  4. ASTHMA-SPRAY [Concomitant]
  5. SALBUTAMOL [Concomitant]
     Active Substance: ALBUTEROL
  6. ZOLPIDEM [Concomitant]
     Active Substance: ZOLPIDEM\ZOLPIDEM TARTRATE
     Dates: start: 20180525
  7. ACC [Concomitant]
     Active Substance: ACETYLCYSTEINE
  8. IBUPROFEN. [Concomitant]
     Active Substance: IBUPROFEN
  9. NOVAMINSULFONE SODIUM [Concomitant]
     Active Substance: METAMIZOLE
  10. NOVOTHYROX [Suspect]
     Active Substance: LEVOTHYROXINE SODIUM
     Indication: HYPOTHYROIDISM
     Dates: start: 20180526
  11. PANTOPRAZOLE [Concomitant]
     Active Substance: PANTOPRAZOLE
  12. NOVOTHYROX [Suspect]
     Active Substance: LEVOTHYROXINE SODIUM
     Indication: AUTOIMMUNE THYROIDITIS
     Dates: start: 20180526
  13. AZITHROMYCIN ANHYDROUS. [Concomitant]
     Active Substance: AZITHROMYCIN ANHYDROUS
  14. RAMIPRIL. [Concomitant]
     Active Substance: RAMIPRIL
  15. EUPHYLONG [Concomitant]
     Active Substance: THEOPHYLLINE ANHYDROUS

REACTIONS (3)
  - Hospitalisation [None]
  - Angioedema [None]
  - Angioedema [Not Recovered/Not Resolved]

NARRATIVE: CASE EVENT DATE: 20180526
